FAERS Safety Report 10591385 (Version 1)
Quarter: 2014Q4

REPORT INFORMATION
  Report Type: Spontaneous
  Country: US (occurrence: US)
  Receive Date: 20141118
  Receipt Date: 20141118
  Transmission Date: 20150529
  Serious: No
  Sender: FDA-Public Use
  Company Number: US-009507513-1411USA004625

PATIENT
  Sex: Male

DRUGS (2)
  1. ASMANEX [Suspect]
     Active Substance: MOMETASONE FUROATE
     Dosage: 220 MICROGRAM, 2 PUFFS IN THE MORNING AND TWO PUFFS AT NIGHT
     Route: 055
     Dates: start: 20131115
  2. ASMANEX [Suspect]
     Active Substance: MOMETASONE FUROATE
     Dosage: 220 MICROGRAM, 2 PUFFS IN THE MORNING AND TWO PUFFS AT NIGHT
     Route: 055
     Dates: start: 20131115

REACTIONS (3)
  - Incorrect dose administered [Unknown]
  - Overdose [Unknown]
  - No adverse event [Unknown]
